FAERS Safety Report 23667639 (Version 1)
Quarter: 2024Q1

REPORT INFORMATION
  Report Type: Spontaneous
  Country: BR (occurrence: BR)
  Receive Date: 20240325
  Receipt Date: 20240325
  Transmission Date: 20240409
  Serious: Yes (Other)
  Sender: FDA-Public Use
  Company Number: BR-AUROBINDO-AUR-APL-2024-013930

PATIENT
  Age: 81 Year
  Sex: Female

DRUGS (1)
  1. BELEODAQ [Suspect]
     Active Substance: BELINOSTAT
     Indication: T-cell lymphoma
     Dosage: UNK (THE PATIENT COMPLETED 12 CYCLES OF THE TREATMENT WITH THE DRUG. )
     Route: 065

REACTIONS (1)
  - Disease progression [Unknown]
